FAERS Safety Report 7814507-8 (Version None)
Quarter: 2011Q4

REPORT INFORMATION
  Report Type: 
  Country: None (occurrence: None)
  Receive Date: 20111014
  Receipt Date: 20111012
  Transmission Date: 20120403
  Serious: No
  Sender: FDA-Public Use
  Company Number: PHEH2011US06670

PATIENT
  Sex: Female
  Weight: 65.76 kg

DRUGS (5)
  1. TRAMADOL HCL [Concomitant]
     Dosage: 100 MG
  2. TASIGNA [Suspect]
     Dosage: 300 MG, BID
     Route: 048
  3. PROMETHAZINE [Concomitant]
     Dosage: 25 MG, UNK
  4. ONDANSETRON [Concomitant]
     Dosage: 8 MG
  5. VICODIN [Concomitant]

REACTIONS (5)
  - BACK PAIN [None]
  - VOMITING [None]
  - RASH ERYTHEMATOUS [None]
  - PAIN IN EXTREMITY [None]
  - NAUSEA [None]
